FAERS Safety Report 6301855-6 (Version None)
Quarter: 2009Q3

REPORT INFORMATION
  Report Type: 
  Country: None (occurrence: None)
  Receive Date: 20090807
  Receipt Date: 20090728
  Transmission Date: 20100115
  Serious: Yes (Hospitalization)
  Sender: FDA-Public Use
  Company Number: US-ROCHE-633661

PATIENT
  Sex: Male
  Weight: 124.5 kg

DRUGS (27)
  1. TOCILIZUMAB [Suspect]
     Indication: RHEUMATOID ARTHRITIS
     Dosage: THERAPY TEMPORARILY INTERRUPTED.
     Route: 042
     Dates: start: 20060307
  2. TOCILIZUMAB [Suspect]
     Dosage: DOSAGE FORM : INFUSION
     Route: 042
  3. BLINDED TOCILIZUMAB [Suspect]
     Indication: RHEUMATOID ARTHRITIS
     Dosage: DOSE BLINDED.
     Route: 042
  4. MULTI-VITAMIN [Concomitant]
     Dates: start: 20050101
  5. OXYCODONE HCL [Concomitant]
     Dates: start: 20051101
  6. OXYCODONE HCL [Concomitant]
     Dates: start: 20051201
  7. FOLIC ACID [Concomitant]
     Dates: start: 20050608
  8. METHOTREXATE [Concomitant]
     Dosage: FREQUENCY REPORTED: QS
     Dates: start: 20070110
  9. METHOTREXATE [Concomitant]
     Dates: start: 20090202
  10. DILTIAZEM [Concomitant]
     Dates: start: 19940101
  11. ASPIRIN TAB [Concomitant]
     Dates: start: 20070106
  12. ZOLOFT [Concomitant]
     Dates: start: 20060818
  13. ENALAPRIL MALEATE [Concomitant]
     Dates: start: 20040101
  14. FLOMAX [Concomitant]
     Dates: start: 20070102
  15. FLOMAX [Concomitant]
     Dates: start: 20090216
  16. POTASSIUM CHLORIDE [Concomitant]
     Dates: start: 20061230
  17. LASIX [Concomitant]
     Dates: start: 20061230
  18. LASIX [Concomitant]
     Dates: start: 20080416
  19. TAGAMET [Concomitant]
     Dates: start: 20070201
  20. SULFASALAZINE [Concomitant]
     Dates: start: 20090202
  21. NABUMETONE [Concomitant]
     Dates: start: 20080211
  22. CYMBALTA [Concomitant]
     Dates: start: 20080616
  23. ROPINIROLE [Concomitant]
     Dates: start: 20081001
  24. CALCIUM [Concomitant]
     Dates: start: 20081205
  25. VITAMIN D [Concomitant]
     Dates: start: 20081205
  26. LUNESTA [Concomitant]
     Dates: start: 20090215
  27. SIMVASTATIN [Concomitant]
     Dates: start: 20080430

REACTIONS (2)
  - CARCINOID TUMOUR [None]
  - NON-HODGKIN'S LYMPHOMA [None]
